FAERS Safety Report 4504986-6 (Version None)
Quarter: 2005Q1

REPORT INFORMATION
  Report Type: 
  Country: None (occurrence: None)
  Receive Date: 20041015
  Receipt Date: 20031126
  Transmission Date: 20050727
  Serious: Yes (Hospitalization)
  Sender: FDA-Public Use
  Company Number: 2003120555

PATIENT
  Age: 74 Year
  Sex: Female
  Weight: 63.5036 kg

DRUGS (23)
  1. NEURONTIN [Suspect]
     Indication: SLEEP DISORDER
     Dosage: 600 MG (BID) ORAL
     Route: 048
     Dates: start: 20030901, end: 20031122
  2. ZOLOFT [Concomitant]
  3. CELEBREX [Concomitant]
  4. ATENOLOL [Concomitant]
  5. AMIODARONE HYDROCHLORIDE [Concomitant]
  6. AMITRIPTYLINE HYDROCHLORIDE [Concomitant]
  7. BENAZEPRIL HCL [Concomitant]
  8. FENTANYL [Concomitant]
  9. LIDOCAINE [Concomitant]
  10. FEXOFENADINE HYDROCHLORIDE [Concomitant]
  11. MAGNESIUM [Concomitant]
  12. MONTELUKAST SODIUM [Concomitant]
  13. ESOMEPRAZOLE [Concomitant]
  14. RALOXIFENE HCL [Concomitant]
  15. WARFARIN SODIUM [Concomitant]
  16. CALCIUM [Concomitant]
  17. TOCOPHEROL CONCENTRATE CAP [Concomitant]
  18. ESTRADIOL [Concomitant]
  19. HYDROCHLOROTHIAZIDE [Concomitant]
  20. MECLIZINE [Concomitant]
  21. SIMVASTATIN [Concomitant]
  22. CENTRUM (VITAMINS NOS, MINERALS NOS) [Concomitant]
  23. MORPHINE [Concomitant]

REACTIONS (19)
  - ABASIA [None]
  - ABNORMAL BEHAVIOUR [None]
  - ASTHENIA [None]
  - ATRIAL FIBRILLATION [None]
  - CONFUSIONAL STATE [None]
  - DELUSION [None]
  - DYSARTHRIA [None]
  - INSOMNIA [None]
  - INTENTIONAL MISUSE [None]
  - IRRITABILITY [None]
  - LETHARGY [None]
  - MEDICATION ERROR [None]
  - NAUSEA [None]
  - OEDEMA PERIPHERAL [None]
  - ORAL INTAKE REDUCED [None]
  - PAROSMIA [None]
  - SOMNOLENCE [None]
  - TREMOR [None]
  - VOMITING [None]
